FAERS Safety Report 5995746-8 (Version None)
Quarter: 2008Q4

REPORT INFORMATION
  Report Type: 
  Country: None (occurrence: None)
  Receive Date: 20081212
  Receipt Date: 20081202
  Transmission Date: 20090506
  Serious: Yes (Other)
  Sender: FDA-Public Use
  Company Number: US-PFIZER INC-2008071346

PATIENT
  Age: 32 Year
  Sex: Female

DRUGS (9)
  1. LYRICA [Suspect]
     Indication: BACK PAIN
     Dosage: UNK
     Dates: start: 20080416, end: 20080924
  2. LYRICA [Suspect]
     Indication: ARTHRALGIA
  3. CHANTIX [Concomitant]
     Indication: SMOKING CESSATION THERAPY
  4. SUBUTEX [Concomitant]
     Dosage: 8 MG, 3X/DAY
  5. HYDROCHLOROTHIAZIDE [Concomitant]
     Dosage: UNK
  6. POTASSIUM [Concomitant]
     Dosage: UNK
  7. CYMBALTA [Concomitant]
     Dosage: UNK
  8. LEXAPRO [Concomitant]
     Dosage: UNK
  9. KLONOPIN [Concomitant]
     Indication: PANIC ATTACK

REACTIONS (11)
  - BLOOD CHLORIDE DECREASED [None]
  - BLOOD GLUCOSE INCREASED [None]
  - DEPRESSION [None]
  - GASTROOESOPHAGEAL REFLUX DISEASE [None]
  - HIGH DENSITY LIPOPROTEIN DECREASED [None]
  - HYPERTENSION [None]
  - JOINT SWELLING [None]
  - OEDEMA PERIPHERAL [None]
  - PAIN [None]
  - RED CELL DISTRIBUTION WIDTH INCREASED [None]
  - SLEEP DISORDER [None]
